FAERS Safety Report 20203968 (Version 1)
Quarter: 2021Q4

REPORT INFORMATION
  Report Type: Spontaneous
  Country: FR (occurrence: FR)
  Receive Date: 20211219
  Receipt Date: 20211219
  Transmission Date: 20220303
  Serious: Yes (Hospitalization, Other)
  Sender: FDA-Public Use
  Company Number: None

PATIENT
  Age: 77 Year
  Sex: Female
  Weight: 57 kg

DRUGS (4)
  1. RIFAMPIN [Suspect]
     Active Substance: RIFAMPIN
     Indication: Lung disorder
     Dosage: 600 MG, QD
     Route: 048
     Dates: start: 20210205
  2. ALTHIAZIDE [Suspect]
     Active Substance: ALTHIAZIDE
     Indication: Lung disorder
     Dosage: 600 MG, QD
     Route: 048
     Dates: start: 20210205
  3. TOCILIZUMAB [Suspect]
     Active Substance: TOCILIZUMAB
     Indication: Giant cell arteritis
     Dosage: 324 MG (162MG* 2X/MONTH)
     Route: 058
     Dates: start: 202101
  4. AZITHROMYCIN [Suspect]
     Active Substance: AZITHROMYCIN
     Indication: Lung disorder
     Dosage: 250 MG, QD
     Route: 048
     Dates: start: 20210205

REACTIONS (1)
  - Neutropenia [Not Recovered/Not Resolved]

NARRATIVE: CASE EVENT DATE: 20211112
